FAERS Safety Report 4706497-1 (Version None)
Quarter: 2005Q3

REPORT INFORMATION
  Report Type: 
  Country: None (occurrence: None)
  Receive Date: 20050705
  Receipt Date: 20050628
  Transmission Date: 20060218
  Serious: Yes (Death)
  Sender: FDA-Public Use
  Company Number: JP-GLAXOSMITHKLINE-B0386454A

PATIENT
  Age: 71 Year
  Sex: Female
  Weight: 63 kg

DRUGS (5)
  1. PAXIL [Suspect]
     Indication: DEPRESSION
     Dosage: 10MG PER DAY
     Route: 048
     Dates: start: 20050411, end: 20050526
  2. LEXOTAN [Concomitant]
     Route: 048
  3. CENNARIDE [Concomitant]
     Route: 048
  4. EVAMYL [Concomitant]
     Route: 048
  5. SULPIRIDE [Concomitant]
     Dates: start: 20030910, end: 20031201

REACTIONS (2)
  - ELECTROCARDIOGRAM QT PROLONGED [None]
  - SUDDEN DEATH [None]
